FAERS Safety Report 18386376 (Version 2)
Quarter: 2020Q4

REPORT INFORMATION
  Report Type: Spontaneous
  Country: DE (occurrence: DE)
  Receive Date: 20201015
  Receipt Date: 20201026
  Transmission Date: 20210114
  Serious: Yes (Hospitalization)
  Sender: FDA-Public Use
  Company Number: DE-PFIZER INC-2020394253

PATIENT
  Age: 53 Year
  Sex: Female

DRUGS (1)
  1. TAFIL [Suspect]
     Active Substance: ALPRAZOLAM
     Dosage: UNK

REACTIONS (5)
  - Restlessness [Unknown]
  - Drug screen positive [Unknown]
  - Incorrect product administration duration [Unknown]
  - Withdrawal syndrome [Unknown]
  - Tremor [Unknown]
